FAERS Safety Report 17484988 (Version 1)
Quarter: 2020Q1

REPORT INFORMATION
  Report Type: Spontaneous
  Country: US (occurrence: US)
  Receive Date: 20200302
  Receipt Date: 20200302
  Transmission Date: 20200409
  Serious: No
  Sender: FDA-Public Use
  Company Number: US-ABBVIE-19S-163-2827742-00

PATIENT
  Age: 85 Year
  Sex: Female

DRUGS (1)
  1. ULTANE [Suspect]
     Active Substance: SEVOFLURANE
     Indication: GASTRIC OPERATION
     Route: 055
     Dates: start: 201906, end: 201906

REACTIONS (2)
  - Somnolence [Not Recovered/Not Resolved]
  - Muscular weakness [Not Recovered/Not Resolved]

NARRATIVE: CASE EVENT DATE: 201906
